FAERS Safety Report 7363381-5 (Version None)
Quarter: 2011Q1

REPORT INFORMATION
  Report Type: 
  Country: None (occurrence: None)
  Receive Date: 20110321
  Receipt Date: 20110308
  Transmission Date: 20110831
  Serious: Yes (Hospitalization, Other)
  Sender: FDA-Public Use
  Company Number: US-JNJFOC-20081205316

PATIENT
  Sex: Female
  Weight: 76.2 kg

DRUGS (9)
  1. REMICADE [Suspect]
     Route: 042
  2. MESALAMINE [Concomitant]
  3. REMICADE [Suspect]
     Route: 042
  4. REMICADE [Suspect]
     Indication: CROHN'S DISEASE
     Route: 042
  5. REMICADE [Suspect]
     Indication: INFLAMMATORY BOWEL DISEASE
     Route: 042
  6. REMICADE [Suspect]
     Route: 042
  7. MERCAPTOPURINE [Concomitant]
  8. REMICADE [Suspect]
     Route: 042
  9. BACTRIM [Concomitant]

REACTIONS (1)
  - ABDOMINAL PAIN [None]
